FAERS Safety Report 11624252 (Version 1)
Quarter: 2015Q4

REPORT INFORMATION
  Report Type: Spontaneous
  Country: US (occurrence: US)
  Receive Date: 20151013
  Receipt Date: 20151013
  Transmission Date: 20160304
  Serious: No
  Sender: FDA-Public Use
  Company Number: US-JNJFOC-20150908786

PATIENT
  Age: 65 Year
  Sex: Female
  Weight: 49.9 kg

DRUGS (5)
  1. SINEMET [Concomitant]
     Active Substance: CARBIDOPA\LEVODOPA
     Indication: PARKINSONISM
     Dosage: 10 YEARS
  2. WOMENS ROGAINE UNSCENTED [Suspect]
     Active Substance: MINOXIDIL
     Indication: ALOPECIA
     Dosage: CAPFUL DAILY
     Route: 061
  3. WOMENS ROGAINE UNSCENTED [Suspect]
     Active Substance: MINOXIDIL
     Route: 061
  4. MIRAPEX [Concomitant]
     Active Substance: PRAMIPEXOLE DIHYDROCHLORIDE
     Indication: PARKINSONISM
     Dosage: 10 YEARS
     Route: 065
  5. AMANTADINE [Concomitant]
     Active Substance: AMANTADINE
     Indication: PARKINSONISM
     Dosage: 10 YEARS
     Route: 065

REACTIONS (2)
  - Incorrect dose administered [Not Recovered/Not Resolved]
  - Hair texture abnormal [Not Recovered/Not Resolved]
